FAERS Safety Report 10456132 (Version 2)
Quarter: 2014Q3

REPORT INFORMATION
  Report Type: Not Available
  Country: CN (occurrence: CN)
  Receive Date: 20140916
  Receipt Date: 20140916
  Transmission Date: 20150326
  Serious: Yes (Other)
  Sender: FDA-Public Use
  Company Number: CN-MUNDIPHARMA DS AND PHARMACOVIGILANCE-GBR-2014-0021195

PATIENT
  Age: 34 Year
  Sex: Male
  Weight: 69 kg

DRUGS (3)
  1. MS CONTIN [Suspect]
     Active Substance: MORPHINE SULFATE
     Indication: ANALGESIC THERAPY
     Dosage: 60 MG, BID
     Route: 048
     Dates: start: 20131031, end: 20131107
  2. MS CONTIN [Suspect]
     Active Substance: MORPHINE SULFATE
     Indication: PYREXIA
  3. MS CONTIN [Suspect]
     Active Substance: MORPHINE SULFATE
     Indication: ARTHRALGIA

REACTIONS (5)
  - Hallucination, auditory [Recovered/Resolved]
  - Tinnitus [Recovered/Resolved]
  - Pruritus [Recovered/Resolved]
  - Deafness [Recovered/Resolved]
  - Ear pain [Recovered/Resolved]

NARRATIVE: CASE EVENT DATE: 20131107
